FAERS Safety Report 9715922 (Version 2)
Quarter: 2013Q4

REPORT INFORMATION
  Report Type: Report from Study
  Country: DE (occurrence: DE)
  Receive Date: 20131127
  Receipt Date: 20131211
  Transmission Date: 20140711
  Serious: Yes (Hospitalization)
  Sender: FDA-Public Use
  Company Number: DE-ROCHE-1304327

PATIENT
  Age: 52 Year
  Sex: Female
  Weight: 114 kg

DRUGS (11)
  1. TRASTUZUMAB EMTANSINE [Suspect]
     Indication: BREAST CANCER METASTATIC
     Dosage: LAST DOSE PRIOR TO SAE; 07/NOV/2013.
     Route: 042
     Dates: start: 20131107, end: 20131113
  2. BISOPROLOL [Concomitant]
     Route: 065
     Dates: start: 2009
  3. COAPROVEL [Concomitant]
     Dosage: STRENGTH: 300/25MG
     Route: 065
     Dates: start: 2009
  4. CITALOPRAM [Concomitant]
     Route: 065
     Dates: start: 2012
  5. TARGIN [Concomitant]
     Route: 065
     Dates: start: 201112
  6. DEKRISTOL [Concomitant]
     Dosage: 20000IE
     Route: 065
     Dates: start: 201203
  7. NEUROBION FORTE [Concomitant]
     Dosage: 1 TBL
     Route: 065
     Dates: start: 2012
  8. ZOMETA [Concomitant]
     Route: 065
     Dates: start: 20121213
  9. SELOKEN DEPOT [Concomitant]
     Route: 065
  10. FOLIC ACID [Concomitant]
     Route: 065
     Dates: start: 201303
  11. NOVAMINSULFON [Concomitant]
     Route: 065
     Dates: start: 201112

REACTIONS (1)
  - Hepatic failure [Recovered/Resolved with Sequelae]
